FAERS Safety Report 14921496 (Version 3)
Quarter: 2018Q2

REPORT INFORMATION
  Report Type: Spontaneous
  Country: US (occurrence: US)
  Receive Date: 20180522
  Receipt Date: 20180630
  Transmission Date: 20180711
  Serious: Yes (Life-Threatening, Hospitalization, Other)
  Sender: FDA-Public Use
  Company Number: US-AMGEN-USASP2018067338

PATIENT
  Age: 52 Year
  Sex: Male
  Weight: 80.3 kg

DRUGS (5)
  1. REVLIMID [Concomitant]
     Active Substance: LENALIDOMIDE
     Dosage: 100 MG, UNK
     Route: 048
     Dates: start: 20180426, end: 20180507
  2. CARFILZOMIB [Concomitant]
     Active Substance: CARFILZOMIB
     Indication: PRODUCT USED FOR UNKNOWN INDICATION
     Dosage: 342 MG, UNK
     Route: 042
     Dates: start: 20180426, end: 20180511
  3. ALLOPURINOL. [Concomitant]
     Active Substance: ALLOPURINOL
  4. PROLIA [Suspect]
     Active Substance: DENOSUMAB
     Indication: PRODUCT USED FOR UNKNOWN INDICATION
     Dosage: UNK
     Route: 065
  5. DEXAMETHASONE. [Concomitant]
     Active Substance: DEXAMETHASONE
     Dosage: 132 MG, UNK
     Route: 048
     Dates: start: 20180426, end: 20180511

REACTIONS (3)
  - Face oedema [Unknown]
  - Rash pruritic [Unknown]
  - Hypocalcaemia [Recovered/Resolved]

NARRATIVE: CASE EVENT DATE: 20180510
